FAERS Safety Report 6574772-4 (Version None)
Quarter: 2010Q1

REPORT INFORMATION
  Report Type: 
  Country: None (occurrence: None)
  Receive Date: 20100209
  Receipt Date: 20100127
  Transmission Date: 20100710
  Serious: Yes (Other)
  Sender: FDA-Public Use
  Company Number: PHHY2010JP03850

PATIENT
  Age: 55 Year
  Sex: Male

DRUGS (9)
  1. CYCLOSPORINE [Suspect]
     Indication: LIVER TRANSPLANT
  2. MYCOPHENOLATE MOFETIL [Suspect]
     Indication: LIVER TRANSPLANT
     Dosage: 1500 MG/DAY
  3. MYCOPHENOLATE MOFETIL [Suspect]
     Dosage: 500 MG/DAY
  4. FK 506 [Concomitant]
     Indication: LIVER TRANSPLANT
     Dosage: 300 MG/DAY
     Route: 048
  5. AZATHIOPRINE [Concomitant]
     Indication: LIVER TRANSPLANT
  6. PREDONINE [Concomitant]
     Indication: LIVER TRANSPLANT
  7. UFT [Concomitant]
  8. NEXAVAR [Concomitant]
  9. ZOMETA [Concomitant]

REACTIONS (7)
  - ARTHRALGIA [None]
  - BLOOD ALKALINE PHOSPHATASE INCREASED [None]
  - CHONDROPATHY [None]
  - HEPATIC CANCER METASTATIC [None]
  - METASTASES TO BONE [None]
  - PAIN IN EXTREMITY [None]
  - RADIOTHERAPY [None]
